FAERS Safety Report 9334318 (Version 1)
Quarter: 2013Q2

REPORT INFORMATION
  Report Type: Spontaneous
  Country: US (occurrence: US)
  Receive Date: 20130606
  Receipt Date: 20130606
  Transmission Date: 20140414
  Serious: No
  Sender: FDA-Public Use
  Company Number: US-AMGEN-USASP2013024980

PATIENT
  Age: 81 Year
  Sex: Female

DRUGS (5)
  1. PROLIA [Suspect]
     Indication: OSTEOPOROSIS
     Dosage: UNK UNK, Q6MO
     Dates: start: 20120323
  2. CALCIUM [Concomitant]
     Dosage: 1000 UNK, UNK
  3. VITAMIN D3 [Concomitant]
     Dosage: 600 UNK, UNK
  4. LIPITOR [Concomitant]
     Dosage: 10 MG, QD
  5. SYNTHROID [Concomitant]

REACTIONS (3)
  - Paraesthesia [Not Recovered/Not Resolved]
  - Middle insomnia [Unknown]
  - Myalgia [Unknown]
